FAERS Safety Report 25929824 (Version 1)
Quarter: 2025Q4

REPORT INFORMATION
  Report Type: Spontaneous
  Country: AU (occurrence: AU)
  Receive Date: 20251016
  Receipt Date: 20251016
  Transmission Date: 20260117
  Serious: Yes (Hospitalization)
  Sender: MYLAN
  Company Number: AU-MYLANLABS-2025M1087407

PATIENT
  Age: 6 Decade
  Sex: Male

DRUGS (16)
  1. METFORMIN [Suspect]
     Active Substance: METFORMIN HYDROCHLORIDE
     Indication: Type 2 diabetes mellitus
     Dosage: 1 GRAM, QD
  2. TENOFOVIR [Suspect]
     Active Substance: TENOFOVIR
     Indication: HIV infection
     Dosage: 300 MILLIGRAM, QD
  3. OLMESARTAN [Suspect]
     Active Substance: OLMESARTAN
     Indication: Hypertension
     Dosage: 40 MILLIGRAM, QD
  4. OLMESARTAN [Suspect]
     Active Substance: OLMESARTAN
     Indication: Chronic kidney disease
     Dosage: UNK; THERAPY WITHHELD AND CONTINUED
  5. DAPAGLIFLOZIN [Suspect]
     Active Substance: DAPAGLIFLOZIN
     Indication: Type 2 diabetes mellitus
     Dosage: 100 MILLIGRAM, QD
  6. LAMIVUDINE [Concomitant]
     Active Substance: LAMIVUDINE
     Indication: HIV infection
     Dosage: 300 MILLIGRAM, QD
  7. RALTEGRAVIR [Concomitant]
     Active Substance: RALTEGRAVIR
     Indication: HIV infection
     Dosage: 400 MILLIGRAM, BID
  8. AMLODIPINE [Concomitant]
     Active Substance: AMLODIPINE BESYLATE
     Indication: Hypertension
     Dosage: 5 MILLIGRAM, QD
  9. SODIUM CHLORIDE [Concomitant]
     Active Substance: SODIUM CHLORIDE
     Indication: Resuscitation
     Dosage: 2 LITER
  10. PREDNISOLONE [Concomitant]
     Active Substance: PREDNISOLONE
     Indication: Tubulointerstitial nephritis
     Dosage: 60 MILLIGRAM, QD
  11. LINAGLIPTIN [Concomitant]
     Active Substance: LINAGLIPTIN
     Indication: Type 2 diabetes mellitus
     Dosage: UNK
  12. DOLUTEGRAVIR SODIUM\LAMIVUDINE [Concomitant]
     Active Substance: DOLUTEGRAVIR SODIUM\LAMIVUDINE
     Indication: HIV infection
     Dosage: UNK UNK, QD
  13. CALCIUM CARBONATE [Concomitant]
     Active Substance: CALCIUM CARBONATE
     Indication: Supplementation therapy
     Dosage: UNK
  14. CHOLECALCIFEROL [Concomitant]
     Active Substance: CHOLECALCIFEROL
     Indication: Supplementation therapy
     Dosage: UNK
  15. SODIUM BICARBONATE [Concomitant]
     Active Substance: SODIUM BICARBONATE
     Indication: Metabolic acidosis
     Dosage: UNK
  16. SODIUM BICARBONATE [Concomitant]
     Active Substance: SODIUM BICARBONATE
     Indication: Supplementation therapy
     Dosage: UNK

REACTIONS (7)
  - Fanconi syndrome acquired [Recovering/Resolving]
  - Renal tubular acidosis [Recovering/Resolving]
  - Tubulointerstitial nephritis [Recovered/Resolved]
  - Acute kidney injury [Recovered/Resolved]
  - Hypovolaemia [Recovered/Resolved]
  - Vomiting [Recovered/Resolved]
  - Diarrhoea [Recovered/Resolved]
